FAERS Safety Report 9285082 (Version 1)
Quarter: 2013Q2

REPORT INFORMATION
  Report Type: Spontaneous
  Country: US (occurrence: US)
  Receive Date: 20130513
  Receipt Date: 20130513
  Transmission Date: 20140414
  Serious: No
  Sender: FDA-Public Use
  Company Number: US-TEVA-401631USA

PATIENT
  Age: 71 Year
  Sex: Female

DRUGS (2)
  1. NUVIGIL [Suspect]
     Indication: ATTENTION DEFICIT/HYPERACTIVITY DISORDER
     Route: 048
     Dates: start: 20130429
  2. HORIZON [Concomitant]
     Indication: RESTLESS LEGS SYNDROME

REACTIONS (1)
  - Off label use [Unknown]
